FAERS Safety Report 5372204-5 (Version None)
Quarter: 2007Q2

REPORT INFORMATION
  Report Type: 
  Country: None (occurrence: None)
  Receive Date: 20070627
  Receipt Date: 20070621
  Transmission Date: 20071010
  Serious: Yes (Other)
  Sender: FDA-Public Use
  Company Number: B0476373A

PATIENT
  Age: 30 Year
  Sex: Female

DRUGS (6)
  1. TRIZIVIR [Suspect]
     Indication: ANTIVIRAL PROPHYLAXIS
     Route: 048
     Dates: start: 20070410
  2. ZIDOVUDINE [Suspect]
     Indication: ANTIVIRAL PROPHYLAXIS
     Route: 048
     Dates: start: 20070616
  3. FERROUS SULFATE TAB [Concomitant]
  4. FOLIC ACID [Concomitant]
  5. PROSTAGLANDIN [Concomitant]
  6. ANTIBIOTICS [Concomitant]

REACTIONS (4)
  - CERVICITIS [None]
  - LARGE FOR DATES BABY [None]
  - MECONIUM STAIN [None]
  - STILLBIRTH [None]
